FAERS Safety Report 7427095-5 (Version None)
Quarter: 2011Q2

REPORT INFORMATION
  Report Type: 
  Country: None (occurrence: None)
  Receive Date: 20110420
  Receipt Date: 20110412
  Transmission Date: 20111010
  Serious: Yes (Other)
  Sender: FDA-Public Use
  Company Number: US-US-EMD SERONO, INC.-7046870

PATIENT
  Sex: Female

DRUGS (4)
  1. METFORMIN [Concomitant]
     Indication: DIABETES MELLITUS
  2. ALPRAZOLAM [Concomitant]
     Indication: ANXIETY
     Dates: start: 20100301
  3. INSULIN [Concomitant]
     Indication: DIABETES MELLITUS
     Dates: start: 20110201
  4. REBIF [Suspect]
     Indication: MULTIPLE SCLEROSIS
     Route: 058
     Dates: start: 20101015, end: 20110301

REACTIONS (3)
  - ANXIETY [None]
  - DEPRESSED MOOD [None]
  - SELF-INJURIOUS IDEATION [None]
